FAERS Safety Report 19233355 (Version 13)
Quarter: 2022Q4

REPORT INFORMATION
  Report Type: Report from Study
  Country: US (occurrence: US)
  Receive Date: 20210507
  Receipt Date: 20221124
  Transmission Date: 20230113
  Serious: Yes (Hospitalization)
  Sender: FDA-Public Use
  Company Number: US-NOVARTISPH-NVSC2021US103733

PATIENT
  Age: 59 Year
  Sex: Male
  Weight: 68.889 kg

DRUGS (10)
  1. TREPROSTINIL [Suspect]
     Active Substance: TREPROSTINIL
     Indication: Pulmonary arterial hypertension
     Dosage: 10 NG/KG/MIN, CONT
     Route: 042
     Dates: start: 20210430
  2. TREPROSTINIL [Suspect]
     Active Substance: TREPROSTINIL
     Dosage: 10 NG/KG/MIN, CONT
     Route: 042
  3. TREPROSTINIL [Suspect]
     Active Substance: TREPROSTINIL
     Dosage: 10 NG/KG/MIN, CONT
     Route: 042
  4. TREPROSTINIL [Suspect]
     Active Substance: TREPROSTINIL
     Dosage: 8 NG/KG/MIN, CONT
     Route: 042
  5. TREPROSTINIL [Suspect]
     Active Substance: TREPROSTINIL
     Dosage: 6 NG/KG/MIN, CONT
     Route: 042
  6. UPTRAVI [Suspect]
     Active Substance: SELEXIPAG
     Indication: Product used for unknown indication
     Dosage: 1600 UG, BID
     Route: 065
  7. UPTRAVI [Suspect]
     Active Substance: SELEXIPAG
     Dosage: 3200 UG, BID (3 DAYS OF 2 X 1600 MCG TABLETS FOR A TOTAL OF 3200 MCG DOSE TWICE A DAY)
     Route: 065
  8. OPSUMIT [Concomitant]
     Active Substance: MACITENTAN
     Indication: Product used for unknown indication
     Dosage: UNK
     Route: 065
  9. TADALAFIL [Concomitant]
     Active Substance: TADALAFIL
     Indication: Product used for unknown indication
     Dosage: UNK
     Route: 065
  10. LOPERAMIDE [Concomitant]
     Active Substance: LOPERAMIDE
     Indication: Product used for unknown indication
     Dosage: 1 DOSAGE FORM, BID
     Route: 065

REACTIONS (19)
  - Gastrointestinal haemorrhage [Unknown]
  - Rectal haemorrhage [Unknown]
  - Vascular device infection [Unknown]
  - Dyspepsia [Recovered/Resolved]
  - Flushing [Recovered/Resolved]
  - Back pain [Unknown]
  - Pain [Unknown]
  - Erythema [Unknown]
  - Complication associated with device [Unknown]
  - Feeling abnormal [Unknown]
  - Dyspnoea [Unknown]
  - Catheter site haemorrhage [Unknown]
  - Diarrhoea [Unknown]
  - Muscle spasms [Unknown]
  - Pain in jaw [Unknown]
  - Pain in extremity [Not Recovered/Not Resolved]
  - Arthralgia [Unknown]
  - Headache [Unknown]
  - Fatigue [Not Recovered/Not Resolved]

NARRATIVE: CASE EVENT DATE: 20210731
